FAERS Safety Report 5352541-0 (Version None)
Quarter: 2007Q2

REPORT INFORMATION
  Report Type: 
  Country: None (occurrence: None)
  Receive Date: 20070611
  Receipt Date: 20070530
  Transmission Date: 20071010
  Serious: Yes (Other)
  Sender: FDA-Public Use
  Company Number: PHBS2007ES08851

PATIENT
  Age: 54 Year
  Sex: Male

DRUGS (4)
  1. TRILEPTAL [Suspect]
     Indication: PSYCHOTIC DISORDER
     Dosage: 1200 MG/DAY
     Route: 048
     Dates: start: 20060615
  2. SEROQUEL [Concomitant]
     Indication: PSYCHOTIC DISORDER
     Dosage: 600 MG/DAY
     Route: 048
     Dates: start: 20050212
  3. RISPERDAL [Concomitant]
     Indication: PSYCHOTIC DISORDER
     Dosage: 3 MG/DAY
     Route: 048
     Dates: start: 20070323
  4. GEMFIBROZILO [Concomitant]
     Indication: LIPID METABOLISM DISORDER
     Dosage: 900 MG/DAY
     Route: 048
     Dates: start: 20060614

REACTIONS (1)
  - BLOOD SODIUM INCREASED [None]
